FAERS Safety Report 5725102-9 (Version None)
Quarter: 2008Q2

REPORT INFORMATION
  Report Type: 
  Country: None (occurrence: None)
  Receive Date: 20080429
  Receipt Date: 20080423
  Transmission Date: 20081010
  Serious: Yes (Hospitalization)
  Sender: FDA-Public Use
  Company Number: 2008SP006556

PATIENT
  Age: 53 Year
  Sex: Male
  Weight: 72 kg

DRUGS (2)
  1. DESLORATADINE [Suspect]
     Indication: ALLERGIC COUGH
     Dosage: 5 MG;QD;PO
     Route: 048
     Dates: start: 20080331, end: 20080402
  2. TUSSIDANE [Concomitant]

REACTIONS (1)
  - PANCREATITIS ACUTE [None]
